FAERS Safety Report 9510790 (Version 2)
Quarter: 2013Q3

REPORT INFORMATION
  Report Type: Spontaneous
  Country: DE (occurrence: DE)
  Receive Date: 20130910
  Receipt Date: 20130917
  Transmission Date: 20140515
  Serious: Yes (Hospitalization)
  Sender: FDA-Public Use
  Company Number: DE-AMGEN-DEUSP2013062555

PATIENT
  Age: 69 Year
  Sex: Female
  Weight: 60 kg

DRUGS (6)
  1. PEGFILGRASTIM [Suspect]
     Indication: PROPHYLAXIS
     Dosage: 6 MG, ONCE ON DAY TWO OF CHEMOTHERAPY
     Route: 058
     Dates: start: 20130821, end: 20130822
  2. CYCLOPHOSPHAMIDE [Suspect]
     Indication: BREAST CANCER
     Dosage: 3300 MG, Q2WK
     Route: 042
     Dates: start: 20130807, end: 20130821
  3. EPIRUBICIN [Concomitant]
     Indication: BREAST CANCER
     Dosage: 255 MG, Q2WK
     Route: 042
     Dates: start: 20130506, end: 20130607
  4. PACLITAXEL ALBUMIN [Concomitant]
     Indication: BREAST CANCER
     Dosage: 560 MG, Q2WK
     Route: 042
     Dates: start: 20130621, end: 20130724
  5. FOSTER                             /00500401/ [Concomitant]
     Dosage: UNK TWO TIMES
  6. SPIRIVA [Concomitant]
     Dosage: UNK ONE TIME

REACTIONS (1)
  - Pyrexia [Recovered/Resolved]
